FAERS Safety Report 10037283 (Version 1)
Quarter: 2014Q1

REPORT INFORMATION
  Report Type: Spontaneous
  Country: US (occurrence: None)
  Receive Date: 20140325
  Receipt Date: 20140325
  Transmission Date: 20141002
  Serious: No
  Sender: FDA-Public Use
  Company Number: None

PATIENT
  Age: 46 Year
  Sex: Female
  Weight: 47.63 kg

DRUGS (2)
  1. MIRVASO [Suspect]
     Indication: ERYTHEMA
     Dosage: AS NEEDED APPLIED TO A SURFACE, USUALLY THE SKIN
     Route: 061
     Dates: start: 20140305, end: 20140322
  2. MIRVASO [Suspect]
     Indication: ROSACEA
     Dosage: AS NEEDED APPLIED TO A SURFACE, USUALLY THE SKIN
     Route: 061
     Dates: start: 20140305, end: 20140322

REACTIONS (2)
  - Flushing [None]
  - Application site warmth [None]
